FAERS Safety Report 10366317 (Version 4)
Quarter: 2014Q3

REPORT INFORMATION
  Report Type: Spontaneous
  Country: US (occurrence: US)
  Receive Date: 20140806
  Receipt Date: 20140912
  Transmission Date: 20150326
  Serious: No
  Sender: FDA-Public Use
  Company Number: US-PFIZER INC-2014219470

PATIENT
  Age: 46 Year
  Sex: Female
  Weight: 78.01 kg

DRUGS (4)
  1. LEXAPRO [Concomitant]
     Active Substance: ESCITALOPRAM OXALATE
     Dosage: UNK
  2. EFFEXOR [Suspect]
     Active Substance: VENLAFAXINE HYDROCHLORIDE
     Indication: DEPRESSION
     Dosage: 75 MG, 1X/DAY
     Route: 048
     Dates: start: 20140714, end: 20140720
  3. EFFEXOR [Suspect]
     Active Substance: VENLAFAXINE HYDROCHLORIDE
     Indication: ANXIETY
     Dosage: 150 MG, UNK
     Route: 048
     Dates: start: 20140721, end: 20140801
  4. RESTORIL [Concomitant]
     Active Substance: TEMAZEPAM
     Indication: SOMNOLENCE
     Dosage: UNK

REACTIONS (6)
  - Insomnia [Not Recovered/Not Resolved]
  - Anxiety [Unknown]
  - Drug withdrawal syndrome [Unknown]
  - Pruritus [Recovering/Resolving]
  - Restless legs syndrome [Not Recovered/Not Resolved]
  - Restlessness [Unknown]

NARRATIVE: CASE EVENT DATE: 2014
